FAERS Safety Report 5962097-7 (Version None)
Quarter: 2008Q4

REPORT INFORMATION
  Report Type: 
  Country: None (occurrence: None)
  Receive Date: 20081121
  Receipt Date: 20081112
  Transmission Date: 20090506
  Serious: Yes (Hospitalization, Other)
  Sender: FDA-Public Use
  Company Number: PHHY2008FR27119

PATIENT
  Sex: Male

DRUGS (69)
  1. PARLODEL [Suspect]
     Indication: PARKINSON'S DISEASE
     Dosage: 2.5 MG, TID
     Route: 048
     Dates: start: 19961029, end: 19970224
  2. PARLODEL [Suspect]
     Dosage: 5 MG, TID
     Route: 048
     Dates: start: 19970225, end: 19981026
  3. PARLODEL [Suspect]
     Dosage: 10 MG, QID
     Route: 048
     Dates: start: 20000606, end: 20021114
  4. PARLODEL [Suspect]
     Dosage: 2.5 MG, QID
     Route: 048
     Dates: start: 20010601, end: 20020801
  5. PARLODEL [Suspect]
     Dosage: 5 MG, BID
     Route: 048
     Dates: start: 20021115
  6. PARLODEL [Suspect]
     Dosage: 10 MG, BID
     Dates: start: 20021115
  7. PARLODEL [Suspect]
     Dosage: 50 MG, QD
     Route: 048
     Dates: start: 20001129, end: 20010205
  8. PARLODEL [Suspect]
     Dosage: 50 MG, QD
     Route: 048
     Dates: start: 20020527, end: 20030412
  9. PERGOLIDE MESYLATE [Suspect]
     Indication: PARKINSON'S DISEASE
     Dosage: 1 MG, QID
     Dates: start: 20010205, end: 20010515
  10. PERGOLIDE MESYLATE [Suspect]
     Dosage: 0.25 MG, QID
     Route: 048
     Dates: start: 20010516, end: 20010530
  11. PERGOLIDE MESYLATE [Suspect]
     Dosage: 1 MG, QID
     Route: 048
     Dates: start: 20030429, end: 20031028
  12. PERGOLIDE MESYLATE [Suspect]
     Dosage: 1 MG, TID
     Route: 048
     Dates: start: 20031029
  13. PERGOLIDE MESYLATE [Suspect]
     Dosage: 1 MG, TID
     Dates: start: 20050605
  14. TRIVASTAL [Suspect]
     Indication: PARKINSON'S DISEASE
     Dosage: 4 DF, QD
     Route: 048
     Dates: start: 20060619, end: 20070129
  15. TRIVASTAL [Suspect]
     Dosage: 2 DF, QD
     Route: 048
     Dates: start: 20070130
  16. MADOPAR [Suspect]
     Dosage: 3 DF, QD
     Route: 048
     Dates: start: 19961029, end: 19980917
  17. MADOPAR [Suspect]
     Dosage: 4 DF, QD
     Route: 048
     Dates: start: 19980918, end: 19981025
  18. MADOPAR [Suspect]
     Dosage: 5 DF, QD
     Route: 048
     Dates: start: 19981026, end: 20000605
  19. MADOPAR [Suspect]
     Dosage: 6 DF, QD
     Route: 048
     Dates: start: 20000606, end: 20000802
  20. MADOPAR [Suspect]
     Dosage: 5 DF, QD
     Route: 048
     Dates: start: 20000803, end: 20011128
  21. MADOPAR [Suspect]
     Dosage: 1 DF, QD
     Route: 048
     Dates: start: 20011129, end: 20031028
  22. MADOPAR [Suspect]
     Dosage: 5 DF, QD
     Route: 048
     Dates: start: 20031029, end: 20061205
  23. MADOPAR [Suspect]
     Dosage: 1
  24. MADOPAR [Suspect]
     Dosage: 4 DF, QD
     Route: 048
     Dates: start: 20061206, end: 20070319
  25. MADOPAR [Suspect]
     Dosage: 4 DF, QD
     Route: 048
     Dates: start: 20070320
  26. MADOPAR DISPERSIBLE [Suspect]
     Dosage: 2 DF, QD
     Route: 048
     Dates: start: 20000606, end: 20000802
  27. MADOPAR DISPERSIBLE [Suspect]
     Dosage: 1 DF, QD
     Route: 048
     Dates: start: 20000803, end: 20010204
  28. MADOPAR DISPERSIBLE [Suspect]
     Dosage: 0.5 DF, QID
     Route: 048
     Dates: start: 20010205, end: 20010531
  29. MADOPAR DISPERSIBLE [Suspect]
     Dosage: 0.5 DF, QD
     Route: 048
     Dates: start: 20010601, end: 20011128
  30. MADOPAR DISPERSIBLE [Suspect]
     Dosage: 0.5 DF, QID
     Route: 048
     Dates: start: 20011129, end: 20011201
  31. MADOPAR DISPERSIBLE [Suspect]
     Dosage: 1.5 TAB TWICE + 1 TAB DAILY
     Route: 048
     Dates: start: 20011201
  32. MADOPAR DISPERSIBLE [Suspect]
     Dosage: 1 DF, QD
     Route: 048
     Dates: start: 20020303, end: 20030411
  33. MADOPAR DISPERSIBLE [Suspect]
     Dosage: 1.5 DF, 5QD
     Route: 048
     Dates: start: 20030412, end: 20031028
  34. MADOPAR DISPERSIBLE [Suspect]
     Dosage: 1 DF, QD
     Route: 048
     Dates: start: 20031029
  35. MADOPAR DISPERSIBLE [Suspect]
     Dosage: 3 DF, QD
     Route: 048
     Dates: start: 20050605, end: 20061205
  36. MADOPAR DISPERSIBLE [Suspect]
     Dosage: 0.5 DF, QD
     Route: 048
     Dates: start: 20061206, end: 20070129
  37. MADOPAR DISPERSIBLE [Suspect]
     Dosage: 4 DF, QD
     Route: 048
     Dates: start: 20070130, end: 20070319
  38. MADOPAR DISPERSIBLE [Suspect]
     Dosage: 2 DF, QD
     Route: 048
     Dates: start: 20070320
  39. MADOPAR [Suspect]
     Dosage: 2 DF, QD
     Route: 048
     Dates: start: 19961029, end: 19981025
  40. MADOPAR [Suspect]
     Dosage: 2 DF, QD
     Route: 048
     Dates: start: 19981026
  41. TASMAR [Suspect]
     Dosage: 3 DF, QD
     Route: 048
     Dates: start: 19980918, end: 19981019
  42. TASMAR [Suspect]
     Dosage: 3 DF, QD
     Route: 048
     Dates: start: 19981020
  43. SINEMET [Suspect]
     Dosage: 4 DF, QD
     Route: 048
     Dates: start: 20010205, end: 20010531
  44. SINEMET [Suspect]
     Dosage: 5 DF, QD
     Route: 048
     Dates: start: 20010601, end: 20011128
  45. SINEMET [Suspect]
     Dosage: 6 DF, QD
     Route: 048
     Dates: start: 20011129, end: 20021114
  46. SINEMET [Suspect]
     Dosage: 7 DF, QD
     Route: 048
     Dates: start: 20021115, end: 20031028
  47. SINEMET [Suspect]
     Dosage: 1 DF, QD
     Route: 048
     Dates: start: 20031029
  48. SINEMET [Suspect]
     Dosage: 1 DF, QD
     Route: 048
     Dates: start: 20061206, end: 20070129
  49. SINEMET [Suspect]
     Dosage: 1 DF, QD
     Route: 048
     Dates: start: 20070130
  50. SINEMET [Suspect]
     Dosage: 5.5 DF, QD
     Route: 048
     Dates: start: 20010601, end: 20011128
  51. SINEMET [Suspect]
     Dosage: 6 DF, QD
     Route: 048
     Dates: start: 20011129, end: 20011211
  52. SINEMET [Suspect]
     Dosage: 5 DF, QD
     Route: 048
     Dates: start: 20011212, end: 20020311
  53. SINEMET [Suspect]
     Dosage: 5.5 DF, QD
     Route: 048
     Dates: start: 20020312, end: 20021114
  54. SINEMET [Suspect]
     Dosage: 4.5 DF, QD
     Route: 048
     Dates: start: 20021115
  55. LEXOMIL [Concomitant]
     Dosage: 3 MG, TID
     Route: 048
     Dates: start: 20020808, end: 20021114
  56. LEXOMIL [Concomitant]
     Dosage: 1.5 MG, TID
     Route: 048
     Dates: start: 20021115
  57. LEXOMIL [Concomitant]
     Dosage: 1.5 MG, QD
     Route: 048
     Dates: start: 20040412
  58. ACTAPULGITE [Concomitant]
     Dosage: 1-2 SACHETS/DAY
     Dates: start: 19981026
  59. MOTILIUM [Concomitant]
     Dosage: UNK
     Dates: start: 20000606
  60. MANTADIX [Concomitant]
     Dosage: 3 DF, QD
     Route: 048
     Dates: start: 20020116, end: 20020311
  61. MANTADIX [Concomitant]
     Dosage: 3 DF, QD
     Route: 048
     Dates: start: 20020312, end: 20020808
  62. HUILE DE PARAFFINE ^GILBERT^ [Concomitant]
     Dosage: 2 DF, QD
     Dates: start: 20020312
  63. PROCTOLOG [Concomitant]
     Dosage: UNK
     Route: 054
     Dates: start: 20020312
  64. PROCTOLOG [Concomitant]
     Dosage: UNK
     Route: 054
     Dates: start: 20080803
  65. IMOVANE [Concomitant]
     Dosage: 1 DF, QD
     Route: 048
     Dates: start: 20021115, end: 20030411
  66. IMOVANE [Concomitant]
     Dosage: 1 DF, QD
     Route: 048
     Dates: start: 20030412
  67. KETODERM [Concomitant]
     Dosage: 1 DF, QD
     Route: 061
     Dates: start: 20021105
  68. DEROXAT [Concomitant]
     Dosage: 1 DF, QD
     Route: 048
     Dates: start: 19981029
  69. COMTAN [Concomitant]
     Dosage: 3 DF, QD
     Route: 048
     Dates: start: 20070320

REACTIONS (14)
  - ABNORMAL BEHAVIOUR [None]
  - AFFECTIVE DISORDER [None]
  - AKINESIA [None]
  - DRUG DEPENDENCE [None]
  - DYSKINESIA [None]
  - DYSTONIA [None]
  - FLIGHT OF IDEAS [None]
  - INCREASED APPETITE [None]
  - INSOMNIA [None]
  - MOTOR DYSFUNCTION [None]
  - MYALGIA [None]
  - OVERDOSE [None]
  - PARAESTHESIA [None]
  - PATHOLOGICAL GAMBLING [None]
